FAERS Safety Report 8279424-0 (Version None)
Quarter: 2012Q2

REPORT INFORMATION
  Report Type: 
  Country: None (occurrence: None)
  Receive Date: 20120412
  Receipt Date: 20120224
  Transmission Date: 20120825
  Serious: No
  Sender: FDA-Public Use
  Company Number: US-ASTRAZENECA-2012SE13127

PATIENT
  Age: 49 Year
  Sex: Female

DRUGS (4)
  1. NEXIUM [Suspect]
     Indication: GASTROOESOPHAGEAL REFLUX DISEASE
     Route: 048
     Dates: start: 20080101
  2. NEXIUM [Suspect]
     Indication: GASTRITIS
     Route: 048
     Dates: start: 20080101
  3. NEXIUM [Suspect]
     Indication: VOMITING
     Route: 048
     Dates: start: 20080101
  4. BIRTH CONTROL PILLS [Concomitant]

REACTIONS (3)
  - DRUG DOSE OMISSION [None]
  - ABDOMINAL DISCOMFORT [None]
  - DRUG PRESCRIBING ERROR [None]
